FAERS Safety Report 7561260-1 (Version None)
Quarter: 2011Q2

REPORT INFORMATION
  Report Type: 
  Country: None (occurrence: None)
  Receive Date: 20110621
  Receipt Date: 20100617
  Transmission Date: 20111010
  Serious: No
  Sender: FDA-Public Use
  Company Number: US-ASTRAZENECA-2010SE28469

PATIENT
  Sex: Female

DRUGS (1)
  1. PULMICORT [Suspect]
     Dosage: 200 MCG
     Route: 055
     Dates: start: 20100617

REACTIONS (2)
  - EXPIRED DRUG ADMINISTERED [None]
  - COUGH [None]
